FAERS Safety Report 9780158 (Version 1)
Quarter: 2013Q4

REPORT INFORMATION
  Report Type: Spontaneous
  Country: NL (occurrence: NL)
  Receive Date: 20131223
  Receipt Date: 20131223
  Transmission Date: 20140711
  Serious: Yes (Other)
  Sender: FDA-Public Use
  Company Number: NL-009507513-1312NLD009564

PATIENT
  Age: 74 Year
  Sex: Female

DRUGS (1)
  1. SAFLUTAN [Suspect]
     Indication: GLAUCOMA
     Dosage: ONCE DAILY IN THE EVENING IN THE RIGHT EYE
     Route: 047
     Dates: start: 2012

REACTIONS (1)
  - Malignant neoplasm of eye [Not Recovered/Not Resolved]
